FAERS Safety Report 6985013-8 (Version None)
Quarter: 2010Q3

REPORT INFORMATION
  Report Type: 
  Country: None (occurrence: None)
  Receive Date: 20100915
  Receipt Date: 20100902
  Transmission Date: 20110219
  Serious: Yes (Other)
  Sender: FDA-Public Use
  Company Number: PHHY2010US59435

PATIENT
  Sex: Female

DRUGS (2)
  1. EXJADE [Suspect]
     Dosage: 1375 MG, QD
     Route: 048
  2. EXJADE [Suspect]
     Dosage: 1375 MG, EVERY OTHER DAY
     Route: 048

REACTIONS (2)
  - DIABETIC ULCER [None]
  - GINGIVAL PAIN [None]
